FAERS Safety Report 8167689-5 (Version None)
Quarter: 2012Q1

REPORT INFORMATION
  Report Type: 
  Country: None (occurrence: None)
  Receive Date: 20120227
  Receipt Date: 20120216
  Transmission Date: 20120608
  Serious: Yes (Death, Hospitalization)
  Sender: FDA-Public Use
  Company Number: BR-ROCHE-705474

PATIENT
  Sex: Female
  Weight: 82 kg

DRUGS (10)
  1. RITUXAN [Suspect]
     Indication: RHEUMATOID ARTHRITIS
     Dosage: FORM: INFUSION; DOSE: 1000 MG/ML; RECEIVED 2 INFUSIONS, EVERY 15 DAYS
     Route: 042
     Dates: start: 20090808, end: 20110704
  2. CORTISONE ACETATE [Concomitant]
  3. RITUXAN [Suspect]
  4. METHOTREXATE [Concomitant]
  5. RITUXAN [Suspect]
     Route: 042
  6. AFRIN [Concomitant]
  7. MYCOPHENOLATE MOFETIL [Concomitant]
  8. RITUXAN [Suspect]
     Dosage: FORM: INFUSION; DOSE: 1000 MG/ML; RECEIVED 2 INFUSIONS, EVERY 15 DAYS
     Route: 042
     Dates: start: 20100503, end: 20100514
  9. PREDNISOLONE [Concomitant]
     Dosage: DRUG REPORTED AS PREDSIN
  10. LEVOTHYROXINE SODIUM [Concomitant]

REACTIONS (13)
  - PAIN IN EXTREMITY [None]
  - ARTHRITIS [None]
  - BLOOD PRESSURE FLUCTUATION [None]
  - NASOPHARYNGITIS [None]
  - RHEUMATOID ARTHRITIS [None]
  - WALKING DISABILITY [None]
  - FOOT FRACTURE [None]
  - OSTEOARTHRITIS [None]
  - DYSPNOEA [None]
  - PNEUMONIA [None]
  - HOT FLUSH [None]
  - BLOOD PRESSURE INCREASED [None]
  - OSTEOPOROSIS [None]
